FAERS Safety Report 4593290-6 (Version None)
Quarter: 2005Q1

REPORT INFORMATION
  Report Type: 
  Country: None (occurrence: None)
  Receive Date: 20050224
  Receipt Date: 20040409
  Transmission Date: 20050727
  Serious: No
  Sender: FDA-Public Use
  Company Number: US-BRISTOL-MYERS SQUIBB COMPANY-12559423

PATIENT
  Age: 43 Year
  Sex: Male
  Weight: 86 kg

DRUGS (1)
  1. EXCEDRIN (MIGRAINE) [Suspect]
     Indication: HEADACHE
     Dosage: TAKEN EVERY 4 OR 6 HOURS.
     Route: 048
     Dates: start: 20040405, end: 20040409

REACTIONS (1)
  - DRUG INEFFECTIVE [None]
